FAERS Safety Report 4906360-7 (Version None)
Quarter: 2006Q1

REPORT INFORMATION
  Report Type: 
  Country: None (occurrence: None)
  Receive Date: 20060206
  Receipt Date: 20060120
  Transmission Date: 20060701
  Serious: Yes (Life-Threatening, Hospitalization, Disabling)
  Sender: FDA-Public Use
  Company Number: TR-2006-000221

PATIENT
  Sex: Male
  Weight: 90 kg

DRUGS (1)
  1. ULTRAVIST 370 [Suspect]
     Indication: ANGIOGRAM
     Dosage: 20 ML, 1 DOSE
     Dates: start: 20051223, end: 20051223

REACTIONS (9)
  - ANXIETY [None]
  - CEREBRAL ISCHAEMIA [None]
  - CONFUSIONAL STATE [None]
  - DYSPNOEA [None]
  - HYPERSENSITIVITY [None]
  - HYPERTENSIVE CRISIS [None]
  - PANIC REACTION [None]
  - PHAEOCHROMOCYTOMA [None]
  - PROCEDURAL COMPLICATION [None]
